FAERS Safety Report 6961781-6 (Version None)
Quarter: 2010Q3

REPORT INFORMATION
  Report Type: 
  Country: None (occurrence: None)
  Receive Date: 20100901
  Receipt Date: 20100830
  Transmission Date: 20110219
  Serious: Yes (Disabling)
  Sender: FDA-Public Use
  Company Number: US-MERCK-1008USA04166

PATIENT
  Age: 61 Year
  Sex: Female

DRUGS (4)
  1. ZOCOR [Suspect]
     Indication: BLOOD CHOLESTEROL INCREASED
     Route: 048
     Dates: start: 20090401, end: 20090601
  2. ACTOS [Concomitant]
     Route: 065
  3. METFORMIN [Concomitant]
     Route: 065
  4. GLYBURIDE [Concomitant]
     Route: 065

REACTIONS (3)
  - ABASIA [None]
  - MUSCLE INJURY [None]
  - MUSCLE SPASMS [None]
